FAERS Safety Report 17158479 (Version 3)
Quarter: 2021Q3

REPORT INFORMATION
  Report Type: Spontaneous
  Country: US (occurrence: US)
  Receive Date: 20191216
  Receipt Date: 20210811
  Transmission Date: 20211014
  Serious: No
  Sender: FDA-Public Use
  Company Number: US-PFIZER INC-2019539501

PATIENT
  Age: 62 Year
  Sex: Female

DRUGS (1)
  1. LYRICA [Suspect]
     Active Substance: PREGABALIN
     Indication: PAIN IN EXTREMITY
     Dosage: UNK

REACTIONS (6)
  - Yawning [Unknown]
  - Fatigue [Unknown]
  - Somnolence [Unknown]
  - Weight gain poor [Unknown]
  - Withdrawal syndrome [Unknown]
  - Intentional product use issue [Unknown]
